FAERS Safety Report 11425190 (Version 1)
Quarter: 2015Q3

REPORT INFORMATION
  Report Type: Spontaneous
  Country: JP (occurrence: JP)
  Receive Date: 20150827
  Receipt Date: 20150827
  Transmission Date: 20151125
  Serious: Yes (Other)
  Sender: FDA-Public Use
  Company Number: JP-FRESENIUS KABI-FK201504084

PATIENT
  Age: 44 Year
  Sex: Male

DRUGS (8)
  1. DACARBAZINE (MANUFACTURER UNKNOWN) (DACARBAZINE) (DACARBAZINE) [Suspect]
     Active Substance: DACARBAZINE
     Indication: METASTASES TO LYMPH NODES
     Route: 065
  2. NIMUSTINE HYDROCHLORIDE [Suspect]
     Active Substance: NIMUSTINE HYDROCHLORIDE
     Indication: METASTASES TO LYMPH NODES
     Route: 065
  3. NIMUSTINE HYDROCHLORIDE [Suspect]
     Active Substance: NIMUSTINE HYDROCHLORIDE
     Indication: MALIGNANT MELANOMA STAGE III
  4. DACARBAZINE (MANUFACTURER UNKNOWN) (DACARBAZINE) (DACARBAZINE) [Suspect]
     Active Substance: DACARBAZINE
     Indication: MALIGNANT MELANOMA STAGE III
     Route: 065
  5. CISPLATIN (MANUFACTURER UNKNOWN) [Suspect]
     Active Substance: CISPLATIN
     Indication: METASTASES TO LYMPH NODES
  6. VINCRISTINE SULFATE. [Suspect]
     Active Substance: VINCRISTINE SULFATE
     Indication: MALIGNANT MELANOMA STAGE III
  7. VINCRISTINE SULFATE. [Suspect]
     Active Substance: VINCRISTINE SULFATE
     Indication: METASTASES TO LYMPH NODES
  8. CISPLATIN (MANUFACTURER UNKNOWN) [Suspect]
     Active Substance: CISPLATIN
     Indication: MALIGNANT MELANOMA STAGE III
     Route: 065

REACTIONS (1)
  - Myelodysplastic syndrome [Unknown]
